FAERS Safety Report 20631962 (Version 1)
Quarter: 2022Q1

REPORT INFORMATION
  Report Type: Spontaneous
  Country: US (occurrence: US)
  Receive Date: 20220324
  Receipt Date: 20220324
  Transmission Date: 20220423
  Serious: No
  Sender: FDA-Public Use
  Company Number: US-GW PHARMA-202108USGW04181

PATIENT

DRUGS (1)
  1. EPIDIOLEX [Suspect]
     Active Substance: CANNABIDIOL
     Indication: Lennox-Gastaut syndrome
     Dosage: 1200 MILLIGRAM, UNK
     Route: 048
     Dates: start: 20190822

REACTIONS (2)
  - Seizure [Unknown]
  - Emergency care [Unknown]

NARRATIVE: CASE EVENT DATE: 20220225
